FAERS Safety Report 18575718 (Version 5)
Quarter: 2021Q2

REPORT INFORMATION
  Report Type: Report from Study
  Country: KR (occurrence: KR)
  Receive Date: 20201203
  Receipt Date: 20210402
  Transmission Date: 20210717
  Serious: No
  Sender: FDA-Public Use
  Company Number: KR-CELGENEUS-KOR-20201107625

PATIENT
  Age: 78 Year
  Sex: Male
  Weight: 59 kg

DRUGS (10)
  1. DEFERASIROX. [Concomitant]
     Active Substance: DEFERASIROX
     Indication: HAEMOSIDEROSIS
     Dosage: 180 MG X 1 X 1 DAYS
     Route: 048
     Dates: start: 20190214
  2. CHLORPHENIRAMINE MALEATE. [Concomitant]
     Active Substance: CHLORPHENIRAMINE MALEATE
     Dosage: 4 MG X ONCE
     Route: 042
     Dates: start: 20200116, end: 20200116
  3. ONDANSETRON [Concomitant]
     Active Substance: ONDANSETRON
     Indication: PROPHYLAXIS OF NAUSEA AND VOMITING
     Dosage: 8 MG X 1 X 24 HOURS
     Route: 048
     Dates: start: 20200117, end: 20200409
  4. FEDRATINIB [Suspect]
     Active Substance: FEDRATINIB
     Indication: PRIMARY MYELOFIBROSIS
     Dosage: 400 MG X 1 X 1 DAYS
     Route: 048
     Dates: start: 20200117, end: 20200415
  5. CHLORPHENIRAMINE MALEATE. [Concomitant]
     Active Substance: CHLORPHENIRAMINE MALEATE
     Indication: PREMEDICATION
     Dosage: 4 MG X ONCE
     Route: 065
     Dates: start: 20191223, end: 20191223
  6. EUPATILIN [Concomitant]
     Indication: GASTRITIS PROPHYLAXIS
     Dosage: 90 MG X 2 X 1 DAYS
     Route: 048
     Dates: start: 20191223, end: 20200614
  7. FEDRATINIB [Suspect]
     Active Substance: FEDRATINIB
     Dosage: 300 MG X 1 X 1 DAYS
     Route: 048
     Dates: start: 20200423, end: 20210103
  8. DESMOPRESSIN [Concomitant]
     Active Substance: DESMOPRESSIN
     Indication: BENIGN PROSTATIC HYPERPLASIA
     Dosage: 0.1 MG X 1 X 1 DAYS
     Route: 048
     Dates: start: 20191007
  9. MEMANTINE. [Concomitant]
     Active Substance: MEMANTINE
     Indication: PROPHYLAXIS
     Dosage: 10 MG X 1 X 1 DAYS
     Route: 048
     Dates: start: 20191028
  10. VESICARE [Concomitant]
     Active Substance: SOLIFENACIN SUCCINATE
     Indication: BENIGN PROSTATIC HYPERPLASIA
     Dosage: 5 MG X 2 X 1 DAYS
     Route: 048
     Dates: start: 20200615

REACTIONS (2)
  - Vitamin B1 decreased [Not Recovered/Not Resolved]
  - Thrombocytopenia [Not Recovered/Not Resolved]

NARRATIVE: CASE EVENT DATE: 20200117
